FAERS Safety Report 7613106-0 (Version None)
Quarter: 2011Q3

REPORT INFORMATION
  Report Type: 
  Country: None (occurrence: None)
  Receive Date: 20110708
  Receipt Date: 20110627
  Transmission Date: 20111222
  Serious: Yes (Hospitalization)
  Sender: FDA-Public Use
  Company Number: 1000019006

PATIENT
  Age: 68 Year
  Sex: Male

DRUGS (10)
  1. PANTOLOC (PANTOPRAZOLE) (PANTOPRAZOLE) [Concomitant]
  2. ROFLUMILAST (ROFLUMILAST) (TABLETS) [Suspect]
     Indication: CHRONIC OBSTRUCTIVE PULMONARY DISEASE
     Dosage: 500 MCG (500 MCG,1 IN 1 D)
     Dates: start: 20101206, end: 20110106
  3. IBUPROFEN [Suspect]
     Dosage: (6 GM,ONCE)
     Dates: start: 20110130, end: 20110130
  4. ALENDRONATE (ALENDRONATE SODIUM) (ALENDRONATE SODIUM) [Concomitant]
  5. UNIKALK SENIOR / SILVER (CALCIUM, CHOLECALCIFEROL) (CALCIUM, CHOLECALC [Concomitant]
  6. ALFUZOSIN (ALFUZOSIN) (ALFUZOSIN) [Concomitant]
  7. ZOPICLONE (ZOPICLONE) [Suspect]
     Dosage: (75 MG,ONCE)
     Dates: start: 20110130, end: 20110130
  8. SERETIDE (SALMETEROL, FLUTICASONE) (SALMETEROL, FLUTICASONE) [Concomitant]
  9. FURIX (FUROSEMIDE) (FUROSEMIDE) [Concomitant]
  10. SPIRIVA (TIOTROPIUM BROMIDE) (TIOTROPIUM BROMIDE) [Concomitant]

REACTIONS (5)
  - DEPRESSIVE SYMPTOM [None]
  - SUICIDE ATTEMPT [None]
  - ANXIETY [None]
  - INCORRECT DOSE ADMINISTERED [None]
  - RENAL IMPAIRMENT [None]
